FAERS Safety Report 8289621-6 (Version None)
Quarter: 2012Q2

REPORT INFORMATION
  Report Type: 
  Country: None (occurrence: None)
  Receive Date: 20120417
  Receipt Date: 20120410
  Transmission Date: 20120825
  Serious: Yes (Hospitalization)
  Sender: FDA-Public Use
  Company Number: US-B.I. PHARMACEUTICALS,INC./RIDGEFIELD-2012-BP-04963BP

PATIENT
  Sex: Female
  Weight: 55.79 kg

DRUGS (14)
  1. SYMBICORT [Concomitant]
     Indication: CHRONIC OBSTRUCTIVE PULMONARY DISEASE
     Dosage: 4 PUF
     Route: 055
     Dates: start: 20090101
  2. ALPRAZOLAM [Concomitant]
     Indication: ANXIETY
     Dosage: 0.75 MG
     Route: 048
  3. SINGULAIR [Concomitant]
     Dosage: 10 MG
     Route: 048
  4. VICODIN ES [Concomitant]
     Indication: ARTHRALGIA
     Route: 048
     Dates: start: 20100101
  5. ALLOPURINOL [Concomitant]
     Indication: GOUT
     Dosage: 200 MG
     Route: 048
     Dates: start: 20110101
  6. OMEPRAZOLE [Concomitant]
     Dosage: 20 MG
     Route: 048
  7. POTASSIUM CHLORIDE [Concomitant]
     Dosage: 16 MEQ
     Route: 048
  8. FUROSEMIDE [Concomitant]
     Dates: start: 20100101
  9. PRADAXA [Suspect]
     Dosage: 150 MG
     Route: 048
     Dates: start: 20111201
  10. DILTIAZEM HCL [Concomitant]
     Indication: HYPERTENSION
     Dosage: 240 MG
     Route: 048
     Dates: start: 20090101
  11. CALCITRIOL [Concomitant]
     Dosage: 0.25 MCG
     Route: 048
  12. PRADAXA [Suspect]
     Indication: ATRIAL FIBRILLATION
     Dosage: 300 MG
     Route: 048
     Dates: start: 20110501, end: 20111225
  13. FUROSEMIDE [Concomitant]
     Dosage: 80 MG
     Route: 048
     Dates: start: 20100101
  14. SODIUM BICARBONATE [Concomitant]
     Dosage: 3900 MG
     Route: 048

REACTIONS (5)
  - MELAENA [None]
  - HAEMORRHAGE [None]
  - POLYP [None]
  - RECTAL HAEMORRHAGE [None]
  - DIARRHOEA [None]
